FAERS Safety Report 5683945-4 (Version None)
Quarter: 2008Q1

REPORT INFORMATION
  Report Type: 
  Country: None (occurrence: None)
  Receive Date: 20080328
  Receipt Date: 20080319
  Transmission Date: 20080703
  Serious: Yes (Hospitalization)
  Sender: FDA-Public Use
  Company Number: PHHO2008BG03795

PATIENT
  Age: 16 Year
  Sex: Male

DRUGS (3)
  1. TOBRAMYCIN [Suspect]
     Indication: CYSTIC FIBROSIS
     Dates: start: 20060323
  2. CREON [Concomitant]
  3. PULMOZYME [Concomitant]

REACTIONS (6)
  - COUGH [None]
  - DYSPNOEA [None]
  - HAEMOPTYSIS [None]
  - LUNG DISORDER [None]
  - PNEUMONIA [None]
  - TACHYPNOEA [None]
